FAERS Safety Report 11146369 (Version 12)
Quarter: 2017Q4

REPORT INFORMATION
  Report Type: Report from Study
  Country: CA (occurrence: CA)
  Receive Date: 20150528
  Receipt Date: 20171116
  Transmission Date: 20180320
  Serious: Yes (Other)
  Sender: FDA-Public Use
  Company Number: PHHY2012CA069301

PATIENT
  Age: 60 Year
  Sex: Female

DRUGS (13)
  1. ELTROXIN [Concomitant]
     Active Substance: LEVOTHYROXINE
     Indication: PRODUCT USED FOR UNKNOWN INDICATION
     Dosage: UNK
     Route: 065
  2. THYROID [Concomitant]
     Active Substance: LEVOTHYROXINE\LIOTHYRONINE
     Indication: PRODUCT USED FOR UNKNOWN INDICATION
     Dosage: UNK
     Route: 065
  3. ELAVIL [Concomitant]
     Active Substance: AMITRIPTYLINE HYDROCHLORIDE
     Indication: PRODUCT USED FOR UNKNOWN INDICATION
     Dosage: UNK
     Route: 065
  4. TRAMADOL. [Concomitant]
     Active Substance: TRAMADOL
     Indication: PRODUCT USED FOR UNKNOWN INDICATION
     Dosage: UNK
     Route: 065
  5. INSULIN [Concomitant]
     Active Substance: INSULIN NOS
     Indication: PRODUCT USED FOR UNKNOWN INDICATION
     Dosage: 56 U, QD
     Route: 065
  6. SANDOSTATIN LAR DEPOT [Suspect]
     Active Substance: OCTREOTIDE ACETATE
     Indication: NEUROENDOCRINE TUMOUR
     Dosage: 30 MG, QMO (EVERY 4 WEEKS)
     Route: 030
     Dates: start: 20120802
  7. LEVEMIR [Concomitant]
     Active Substance: INSULIN DETEMIR
     Indication: PRODUCT USED FOR UNKNOWN INDICATION
     Dosage: UNK
     Route: 065
  8. LANTUS [Concomitant]
     Active Substance: INSULIN GLARGINE
     Indication: PRODUCT USED FOR UNKNOWN INDICATION
     Dosage: UNK
     Route: 065
  9. SANDOSTATIN [Suspect]
     Active Substance: OCTREOTIDE ACETATE
     Indication: NEUROENDOCRINE TUMOUR
     Dosage: UNK UNK, ONCE/SINGLE
     Route: 058
     Dates: start: 201202
  10. METFORMIN [Concomitant]
     Active Substance: METFORMIN HYDROCHLORIDE
     Indication: PRODUCT USED FOR UNKNOWN INDICATION
     Dosage: UNK
     Route: 065
  11. LOPERAMIDE [Concomitant]
     Active Substance: LOPERAMIDE
     Indication: PRODUCT USED FOR UNKNOWN INDICATION
     Dosage: UNK
     Route: 065
  12. TYLENOL WITH CODEINE [Concomitant]
     Active Substance: ACETAMINOPHEN\CODEINE PHOSPHATE
     Indication: PRODUCT USED FOR UNKNOWN INDICATION
     Dosage: UNK
     Route: 065
  13. VESICARE [Concomitant]
     Active Substance: SOLIFENACIN SUCCINATE
     Indication: PRODUCT USED FOR UNKNOWN INDICATION
     Dosage: UNK
     Route: 065

REACTIONS (50)
  - Pneumonia [Unknown]
  - Dysuria [Unknown]
  - Pollakiuria [Unknown]
  - Head injury [Unknown]
  - Nausea [Recovered/Resolved]
  - Injection site mass [Not Recovered/Not Resolved]
  - Productive cough [Unknown]
  - Anxiety [Unknown]
  - Muscle spasms [Unknown]
  - Blood pressure increased [Unknown]
  - Lower limb fracture [Unknown]
  - Musculoskeletal discomfort [Unknown]
  - Insomnia [Unknown]
  - Oropharyngeal pain [Unknown]
  - Headache [Unknown]
  - Drug effect decreased [Unknown]
  - Tooth abscess [Recovered/Resolved]
  - Pyrexia [Recovering/Resolving]
  - Gastroenteritis viral [Unknown]
  - Respiratory rate decreased [Unknown]
  - Lethargy [Unknown]
  - Chest injury [Unknown]
  - Vomiting [Recovered/Resolved]
  - Hepatic lesion [Unknown]
  - Urinary incontinence [Unknown]
  - Stress [Unknown]
  - Tinnitus [Unknown]
  - Abdominal pain [Unknown]
  - Weight increased [Unknown]
  - Fall [Unknown]
  - Diarrhoea [Unknown]
  - Urinary tract disorder [Unknown]
  - Blood glucose increased [Unknown]
  - Nausea [Recovered/Resolved]
  - Malaise [Unknown]
  - Nasopharyngitis [Unknown]
  - Fatigue [Unknown]
  - Diarrhoea [Recovered/Resolved]
  - Abdominal pain [Recovered/Resolved]
  - Asthenia [Unknown]
  - Blood potassium decreased [Unknown]
  - Pain [Unknown]
  - Upper respiratory tract infection [Recovered/Resolved]
  - Urinary tract infection [Unknown]
  - Epistaxis [Unknown]
  - Influenza [Recovered/Resolved]
  - Swelling [Unknown]
  - Joint injury [Unknown]
  - Injection site mass [Recovered/Resolved]
  - Injection site pain [Recovering/Resolving]

NARRATIVE: CASE EVENT DATE: 20140126
